FAERS Safety Report 13021738 (Version 2)
Quarter: 2016Q4

REPORT INFORMATION
  Report Type: Spontaneous
  Country: CN (occurrence: CN)
  Receive Date: 20161213
  Receipt Date: 20161222
  Transmission Date: 20170207
  Serious: Yes (Hospitalization, Other)
  Sender: FDA-Public Use
  Company Number: CN-GLENMARK PHARMACEUTICALS INC, USA.-2016GMK025361

PATIENT
  Age: 56 Year
  Sex: Female

DRUGS (2)
  1. SODIUM CHLORIDE. [Concomitant]
     Active Substance: SODIUM CHLORIDE
     Indication: URINARY TRACT INFECTION
     Dosage: 100 ML, UNK
     Route: 065
  2. LEVOFLOXACIN. [Suspect]
     Active Substance: LEVOFLOXACIN
     Indication: URINARY TRACT INFECTION
     Dosage: 0.25 G, UNK
     Route: 065
     Dates: start: 20140701, end: 20140930

REACTIONS (2)
  - Paralysis [Recovered/Resolved]
  - Radial nerve palsy [Recovered/Resolved]

NARRATIVE: CASE EVENT DATE: 2014
